FAERS Safety Report 8099931-3 (Version None)
Quarter: 2012Q1

REPORT INFORMATION
  Report Type: 
  Country: None (occurrence: None)
  Receive Date: 20120129
  Receipt Date: 20111127
  Transmission Date: 20120608
  Serious: No
  Sender: FDA-Public Use
  Company Number: US-ABBOTT-11P-163-0878252-00

PATIENT
  Age: 62 Year
  Sex: Female

DRUGS (10)
  1. CALCIUM [Concomitant]
     Indication: RHEUMATOID ARTHRITIS
  2. ATENOLOL [Concomitant]
     Indication: BLOOD PRESSURE
  3. VITAMIN D3 OTC [Concomitant]
     Indication: PRODUCT USED FOR UNKNOWN INDICATION
  4. EVISTA [Concomitant]
     Indication: BREAST DISORDER FEMALE
  5. METHOTREXATE [Concomitant]
     Indication: PRODUCT USED FOR UNKNOWN INDICATION
     Dosage: 8 WEEKLY
  6. HUMIRA [Suspect]
     Indication: RHEUMATOID ARTHRITIS
     Dates: start: 20110104
  7. FOLIC ACID [Concomitant]
     Indication: PRODUCT USED FOR UNKNOWN INDICATION
  8. LEUCOVORIN CALCIUM [Concomitant]
     Indication: RHEUMATOID ARTHRITIS
  9. MULTI-VITAMINS [Concomitant]
     Indication: PRODUCT USED FOR UNKNOWN INDICATION
  10. EVISTA [Concomitant]
     Indication: BONE DISORDER

REACTIONS (3)
  - SNEEZING [None]
  - NASOPHARYNGITIS [None]
  - COUGH [None]
